FAERS Safety Report 8209256-0 (Version None)
Quarter: 2012Q1

REPORT INFORMATION
  Report Type: 
  Country: None (occurrence: None)
  Receive Date: 20120314
  Receipt Date: 20120228
  Transmission Date: 20120608
  Serious: No
  Sender: FDA-Public Use
  Company Number: US-BAYER-2012-020121

PATIENT
  Sex: Female
  Weight: 75 kg

DRUGS (2)
  1. ALEVE (CAPLET) [Suspect]
     Indication: ARTHRITIS
     Route: 048
  2. ASPIRIN [Suspect]
     Indication: ARTHRITIS
     Dosage: UNK
     Route: 048

REACTIONS (4)
  - ERYTHEMA [None]
  - HEADACHE [None]
  - PAIN [None]
  - ABDOMINAL PAIN UPPER [None]
